FAERS Safety Report 7730121-7 (Version None)
Quarter: 2011Q3

REPORT INFORMATION
  Report Type: 
  Country: None (occurrence: None)
  Receive Date: 20110906
  Receipt Date: 20110830
  Transmission Date: 20111222
  Serious: Yes (Death, Hospitalization, Other)
  Sender: FDA-Public Use
  Company Number: PHHY2010JP59793

PATIENT
  Sex: Male
  Weight: 58 kg

DRUGS (17)
  1. BERIZYM [Concomitant]
     Indication: GASTRITIS
     Dosage: 1 G, UNK
     Route: 048
  2. ACTOS [Concomitant]
     Dosage: 30 MG, UNK
     Route: 048
     Dates: start: 20100331
  3. PRAVASTATIN SODIUM [Concomitant]
     Dosage: 10 MG, UNK
     Route: 048
  4. NOVORAPID [Concomitant]
     Dosage: 12 DF, UNK
     Route: 058
     Dates: start: 20100714
  5. AFINITOR [Suspect]
     Dosage: 10 MG, DAILY
     Route: 048
     Dates: start: 20100525, end: 20100604
  6. TEMSIROLIMUS [Suspect]
  7. SORAFENIB TOSILATE [Concomitant]
     Indication: RENAL CELL CARCINOMA
     Dosage: 800 MG, UNK
     Route: 048
     Dates: start: 20090114, end: 20091102
  8. SELBEX [Concomitant]
     Indication: GASTRITIS
     Dosage: 1 G, UNK
     Route: 048
  9. BIOFERMIN [Concomitant]
     Indication: GASTRITIS
     Dosage: 2 G, UNK
     Route: 048
  10. ADRENAL CORTICAL EXTRACT [Concomitant]
  11. SUNITINIB MALATE [Concomitant]
     Indication: RENAL CELL CARCINOMA
     Dosage: 50 MG, UNK
     Route: 048
     Dates: start: 20091103, end: 20100411
  12. CAMOSTAT MESILATE [Concomitant]
     Indication: RENAL CELL CARCINOMA
     Dosage: 400 MG, UNK
     Route: 048
  13. RABEPRAZOLE SODIUM [Concomitant]
     Indication: GASTRITIS
     Dosage: 10 MG, UNK
     Route: 048
  14. AFINITOR [Suspect]
     Indication: RENAL CELL CARCINOMA
     Dosage: 10 MG, QD
     Route: 048
     Dates: start: 20100516, end: 20100522
  15. AFINITOR [Suspect]
     Dosage: 5 MG, DAILY
     Route: 048
     Dates: start: 20100726, end: 20100927
  16. INTERFERON ALFA [Concomitant]
     Indication: RENAL CELL CARCINOMA
     Dosage: 3000000 DF, UNK
     Route: 042
     Dates: start: 20081008, end: 20090108
  17. LEVEMIR [Concomitant]
     Dosage: 6 DF, UNK
     Route: 058
     Dates: start: 20100714

REACTIONS (9)
  - DEATH [None]
  - HYPERGLYCAEMIA [None]
  - HYPOXIA [None]
  - BRONCHOALVEOLAR LAVAGE ABNORMAL [None]
  - PNEUMOCYSTIS JIROVECI PNEUMONIA [None]
  - LUNG DISORDER [None]
  - INTERSTITIAL LUNG DISEASE [None]
  - DYSPNOEA EXERTIONAL [None]
  - LYMPHOCYTE COUNT INCREASED [None]
